FAERS Safety Report 17241144 (Version 1)
Quarter: 2020Q1

REPORT INFORMATION
  Report Type: Spontaneous
  Country: PT (occurrence: PT)
  Receive Date: 20200107
  Receipt Date: 20200107
  Transmission Date: 20200409
  Serious: Yes (Death, Hospitalization, Other)
  Sender: FDA-Public Use
  Company Number: PT-ACCORD-169008

PATIENT
  Age: 69 Year
  Sex: Female

DRUGS (9)
  1. ETOPOSIDE. [Suspect]
     Active Substance: ETOPOSIDE
     Indication: ANGIOCENTRIC LYMPHOMA
     Dosage: 100 MG INTRAVENOUS OVER 2 HOURS, DAYS 2-4
     Route: 042
     Dates: start: 20151208
  2. FOLINIC ACID [Concomitant]
     Active Substance: LEUCOVORIN
     Indication: SUPPORTIVE CARE
     Dosage: 15 MG INTRAVENOUS, 36 HOURS AFTER THE START OF METHOTREXATE INFUSION
     Route: 042
     Dates: start: 20151208
  3. IFOSFAMIDE. [Suspect]
     Active Substance: IFOSFAMIDE
     Indication: ANGIOCENTRIC LYMPHOMA
     Dosage: 1500 MG INTRAVENOUS OVER 2 HOURS, DAYS 2-4
     Route: 042
     Dates: start: 20151208
  4. L-ASPARAGINASE [Suspect]
     Active Substance: ASPARAGINASE
     Indication: ANGIOCENTRIC LYMPHOMA
     Dosage: L-ASPARAGINASE 6000 UI INTRAVENOUS OVER 2 HOURS, DAYS 8, 10, 12, 14, 16, 18 AND 20
     Route: 042
     Dates: start: 20151215
  5. ASPARAGINASE [Suspect]
     Active Substance: ASPARAGINASE
     Indication: ANGIOCENTRIC LYMPHOMA
     Dosage: L-ASPARAGINASE 6000 IU INTRAVENOUS OVER 2 HOURS, DAYS 8, 10, 12, 14, 16, 18 AND 20
     Route: 042
     Dates: start: 20151215
  6. METHOTREXATE. [Suspect]
     Active Substance: METHOTREXATE
     Indication: ANGIOCENTRIC LYMPHOMA
     Dosage: 2000 MG INTRAVENOUS OVER 6 HOURS, DAY 1
     Route: 042
     Dates: start: 20151207
  7. ONDANSETRON [Concomitant]
     Active Substance: ONDANSETRON
     Indication: SUPPORTIVE CARE
     Dosage: 8 MG INTRAVENOUS, 8/8 HOUR, DAYS 1-3
     Route: 042
     Dates: start: 20151207
  8. DEXAMETHASONE. [Suspect]
     Active Substance: DEXAMETHASONE
     Indication: ANGIOCENTRIC LYMPHOMA
     Dosage: 40 MG PER OS, DAYS 2-4) GIVEN EVERY 28 DAYS
     Route: 048
     Dates: start: 20151208
  9. MESNA. [Concomitant]
     Active Substance: MESNA
     Indication: SUPPORTIVE CARE
     Dosage: 600 MG INTRAVENOUS 10-15 MIN PRIOR TO THE START OF IFOSFAMIDE, DAYS 2-4;
     Route: 042
     Dates: start: 20151207

REACTIONS (5)
  - Pyrexia [Fatal]
  - Off label use [Unknown]
  - Multiple organ dysfunction syndrome [Fatal]
  - Pancytopenia [Fatal]
  - Infection [Fatal]

NARRATIVE: CASE EVENT DATE: 201512
